FAERS Safety Report 15238975 (Version 1)
Quarter: 2018Q4

REPORT INFORMATION
  Report Type: Spontaneous
  Country: US (occurrence: US)
  Receive Date: 20180803
  Receipt Date: 20180803
  Transmission Date: 20190204
  Serious: No
  Sender: FDA-Public Use
  Company Number: US-ENDO PHARMACEUTICALS INC-2017-005846

PATIENT

DRUGS (9)
  1. PREDNISONE TABLETS [Suspect]
     Active Substance: PREDNISONE
     Indication: RASH
     Dosage: UNK UNK, UNKNOWN
     Route: 065
     Dates: start: 20171017, end: 201710
  2. BENADRYL [Suspect]
     Active Substance: DIPHENHYDRAMINE HYDROCHLORIDE
     Indication: RASH
     Dosage: UNK UNK, UNKNOWN
     Route: 065
     Dates: start: 20171017, end: 201710
  3. HYDROCORTISONE CREAM .025 [Suspect]
     Active Substance: HYDROCORTISONE
     Indication: RASH
     Dosage: UNK UNK, UNKNOWN
     Route: 065
     Dates: start: 20171017
  4. TRIAMCINOLONE ACETONIDE CREAM [Suspect]
     Active Substance: TRIAMCINOLONE ACETONIDE
     Indication: RASH
     Dosage: UNK UNK, UNKNOWN
     Route: 065
     Dates: start: 20171017, end: 201710
  5. VALSARTAN. [Concomitant]
     Active Substance: VALSARTAN
     Indication: HYPERTENSION
  6. METOPROLOL. [Concomitant]
     Active Substance: METOPROLOL
     Indication: HYPERTENSION
     Dosage: UNK
  7. LIDOCAINE CREAM [Suspect]
     Active Substance: LIDOCAINE
     Indication: RASH
     Dosage: UNK UNK, UNKNOWN
     Route: 065
     Dates: start: 20171017, end: 201710
  8. BENADRYL [Suspect]
     Active Substance: DIPHENHYDRAMINE HYDROCHLORIDE
     Indication: RASH
     Dosage: UNK UNK, UNKNOWN
     Route: 065
     Dates: start: 20171017, end: 201710
  9. CORTICOSTEROID CREAM AND SPRAY (CLOBETASOL) [Suspect]
     Active Substance: CLOBETASOL PROPIONATE
     Indication: RASH
     Dosage: UNK UNK, UNKNOWN
     Route: 065
     Dates: start: 20171017, end: 201710

REACTIONS (2)
  - Rash [Recovering/Resolving]
  - Drug ineffective [Unknown]

NARRATIVE: CASE EVENT DATE: 201710
